FAERS Safety Report 9130011 (Version 2)
Quarter: 2013Q2

REPORT INFORMATION
  Report Type: Spontaneous
  Country: CA (occurrence: CA)
  Receive Date: 20130228
  Receipt Date: 20130509
  Transmission Date: 20140414
  Serious: Yes (Hospitalization, Other)
  Sender: FDA-Public Use
  Company Number: CA-ELI_LILLY_AND_COMPANY-CA201302006811

PATIENT
  Age: 60 Year
  Sex: Female

DRUGS (6)
  1. FORTEO [Suspect]
     Indication: OSTEOPOROSIS
     Dosage: 20 UG, QD
     Route: 058
     Dates: start: 20110108, end: 201301
  2. BISOPROLOL [Concomitant]
  3. SYNTHROID [Concomitant]
  4. ZANTAC [Concomitant]
  5. ASA [Concomitant]
     Dosage: 81 MG, UNK
  6. ATORVASTATIN [Concomitant]

REACTIONS (4)
  - Grand mal convulsion [Recovered/Resolved]
  - Drug hypersensitivity [Recovered/Resolved]
  - Brain stem stroke [Recovered/Resolved]
  - Alcohol withdrawal syndrome [Recovered/Resolved]
